FAERS Safety Report 25860516 (Version 1)
Quarter: 2025Q3

REPORT INFORMATION
  Report Type: Spontaneous
  Country: EU (occurrence: EU)
  Receive Date: 20250929
  Receipt Date: 20250929
  Transmission Date: 20251021
  Serious: Yes (Other)
  Sender: NOVO NORDISK
  Company Number: EU-NOVOPROD-1525897

PATIENT
  Sex: Female

DRUGS (1)
  1. SAXENDA [Suspect]
     Active Substance: LIRAGLUTIDE
     Indication: Product used for unknown indication

REACTIONS (6)
  - Oxygen saturation decreased [Unknown]
  - Dyspnoea [Unknown]
  - Paraesthesia [Unknown]
  - Paraesthesia [Unknown]
  - Sleep apnoea syndrome [Unknown]
  - Fatigue [Unknown]
